FAERS Safety Report 19948696 (Version 1)
Quarter: 2021Q4

REPORT INFORMATION
  Report Type: Report from Study
  Country: BR (occurrence: BR)
  Receive Date: 20211013
  Receipt Date: 20211013
  Transmission Date: 20220303
  Serious: Yes (Hospitalization)
  Sender: FDA-Public Use
  Company Number: BR-NOVARTISPH-NVSC2021BR227403

PATIENT
  Age: 93 Year
  Sex: Female

DRUGS (1)
  1. EXELON [Suspect]
     Active Substance: RIVASTIGMINE TARTRATE
     Indication: Product used for unknown indication
     Dosage: 9.5 MG, QD (18 MG RIVASTIGMINE BASE (PATCH 10 (CM2))
     Route: 062

REACTIONS (7)
  - COVID-19 [Recovered/Resolved]
  - Depression [Recovered/Resolved]
  - Anaemia [Recovered/Resolved]
  - Infection [Recovered/Resolved]
  - Asthenia [Recovered/Resolved]
  - Hypoacusis [Recovering/Resolving]
  - Speech disorder [Recovering/Resolving]

NARRATIVE: CASE EVENT DATE: 20210401
